FAERS Safety Report 5840020-3 (Version None)
Quarter: 2008Q3

REPORT INFORMATION
  Report Type: 
  Country: None (occurrence: None)
  Receive Date: 20080808
  Receipt Date: 20080808
  Transmission Date: 20090109
  Serious: Yes (Other)
  Sender: FDA-Public Use
  Company Number: None

PATIENT
  Age: 35 Year
  Sex: Female
  Weight: 114.3065 kg

DRUGS (2)
  1. LEVOTHYROXINE SODIUM [Suspect]
     Dates: start: 20050101, end: 20070619
  2. SYNTHROID [Suspect]
     Dosage: 125 MG TWO QD
     Dates: start: 20070619, end: 20080730

REACTIONS (3)
  - BLOOD THYROID STIMULATING HORMONE ABNORMAL [None]
  - BLOOD THYROID STIMULATING HORMONE DECREASED [None]
  - PHARMACEUTICAL PRODUCT COMPLAINT [None]
